FAERS Safety Report 8020472-3 (Version None)
Quarter: 2012Q1

REPORT INFORMATION
  Report Type: 
  Country: None (occurrence: None)
  Receive Date: 20120103
  Receipt Date: 20111227
  Transmission Date: 20120608
  Serious: Yes (Other)
  Sender: FDA-Public Use
  Company Number: CA-PFIZER INC-2011314930

PATIENT
  Sex: Male

DRUGS (1)
  1. EPIPEN [Suspect]

REACTIONS (4)
  - INJECTION SITE COLDNESS [None]
  - EXPIRED DRUG ADMINISTERED [None]
  - ACCIDENTAL EXPOSURE [None]
  - INJECTION SITE PALLOR [None]
